FAERS Safety Report 8182721-0 (Version None)
Quarter: 2012Q1

REPORT INFORMATION
  Report Type: 
  Country: None (occurrence: None)
  Receive Date: 20120305
  Receipt Date: 20120227
  Transmission Date: 20120608
  Serious: No
  Sender: FDA-Public Use
  Company Number: US-PFIZER INC-2012052806

PATIENT
  Sex: Female

DRUGS (5)
  1. CRANBERRY [Suspect]
     Dosage: UNK
  2. MULTI-VITAMINS [Suspect]
  3. TOVIAZ [Suspect]
     Dosage: UNK
     Dates: start: 20120101
  4. AMOXICILLIN [Suspect]
     Indication: CYSTITIS
     Dosage: UNK
  5. FISH OIL [Suspect]
     Dosage: UNK

REACTIONS (1)
  - CHROMATURIA [None]
